FAERS Safety Report 6177874-X (Version None)
Quarter: 2009Q2

REPORT INFORMATION
  Report Type: 
  Country: None (occurrence: None)
  Receive Date: 20090501
  Receipt Date: 20090501
  Transmission Date: 20091009
  Serious: Yes (Hospitalization)
  Sender: FDA-Public Use
  Company Number: None

PATIENT
  Age: 39 Year
  Sex: Male
  Weight: 88.5 kg

DRUGS (1)
  1. LITHIUM [Suspect]
     Indication: BIPOLAR I DISORDER
     Dosage: 600 MG HS PO
     Route: 048
     Dates: start: 20081113, end: 20081213

REACTIONS (12)
  - AGITATION [None]
  - BLOOD POTASSIUM DECREASED [None]
  - CONFUSIONAL STATE [None]
  - DELIRIUM [None]
  - DRUG LEVEL INCREASED [None]
  - ELECTROCARDIOGRAM Q WAVES [None]
  - INCORRECT DOSE ADMINISTERED [None]
  - MENTAL STATUS CHANGES [None]
  - NAUSEA [None]
  - SINUSITIS [None]
  - THERAPEUTIC AGENT TOXICITY [None]
  - VOMITING [None]
